FAERS Safety Report 5922056-7 (Version None)
Quarter: 2008Q4

REPORT INFORMATION
  Report Type: 
  Country: None (occurrence: None)
  Receive Date: 20081017
  Receipt Date: 20081010
  Transmission Date: 20090506
  Serious: Yes (Hospitalization, Other)
  Sender: FDA-Public Use
  Company Number: B0534893A

PATIENT
  Age: 22 Year
  Sex: Female
  Weight: 48 kg

DRUGS (28)
  1. PAXIL [Suspect]
     Indication: DRUG USE FOR UNKNOWN INDICATION
     Route: 048
  2. PAXIL [Suspect]
     Indication: PERSONALITY DISORDER
     Dosage: 10MG PER DAY
     Route: 048
     Dates: start: 20080820
  3. MYSLEE [Concomitant]
     Indication: INSOMNIA
     Dosage: 10MG PER DAY
     Route: 048
     Dates: start: 20080831, end: 20080831
  4. DIAZEPAM [Concomitant]
     Indication: ANXIETY
     Route: 048
     Dates: start: 20080828, end: 20080829
  5. RITODRINE HYDROCHLORIDE [Concomitant]
     Route: 042
     Dates: start: 20080828
  6. RINDERON [Concomitant]
     Indication: ANALGESIA
     Dates: start: 20080829, end: 20080830
  7. ZYPREXA [Concomitant]
     Indication: RESTLESSNESS
     Route: 048
     Dates: start: 20080830, end: 20080831
  8. CALONAL [Concomitant]
     Route: 065
     Dates: start: 20080831, end: 20080831
  9. ALOSENN [Concomitant]
     Route: 048
     Dates: start: 20080831, end: 20080831
  10. ZYPREXA [Concomitant]
     Route: 048
     Dates: start: 20080831, end: 20080831
  11. PENTALGIN [Concomitant]
     Route: 065
     Dates: start: 20080901, end: 20080901
  12. ATARAX [Concomitant]
     Route: 048
     Dates: start: 20080901, end: 20080901
  13. UNKNOWN DRUG [Concomitant]
     Route: 042
     Dates: start: 20080901, end: 20080901
  14. CEFAZOLIN SODIUM [Concomitant]
     Route: 042
     Dates: start: 20080901, end: 20080901
  15. SEVOFLURANE [Concomitant]
     Dates: start: 20080901, end: 20080901
  16. THIOPENTAL SODIUM [Concomitant]
     Route: 042
     Dates: start: 20080901, end: 20080901
  17. UNKNOWN DRUG [Concomitant]
     Route: 042
     Dates: start: 20080901, end: 20080901
  18. FENTANEST [Concomitant]
     Route: 042
     Dates: start: 20080901, end: 20080901
  19. CEFAMEZIN [Concomitant]
     Dates: start: 20080901, end: 20080901
  20. UNKNOWN DRUG [Concomitant]
     Dates: start: 20080901, end: 20080901
  21. ATROPINE SULPHATE [Concomitant]
     Dates: start: 20080901, end: 20080901
  22. CINAL [Concomitant]
     Route: 048
     Dates: start: 20080410
  23. INCREMIN [Concomitant]
     Dosage: 18ML PER DAY
     Route: 048
     Dates: start: 20080410
  24. CYANOCOBALAMIN [Concomitant]
     Route: 048
     Dates: start: 20080410
  25. FERRICON [Concomitant]
     Route: 042
     Dates: start: 20080527
  26. UTEMERIN [Concomitant]
     Route: 048
     Dates: start: 20080818, end: 20080819
  27. UTEMERIN [Concomitant]
     Route: 042
     Dates: start: 20080819
  28. SOLDEM [Concomitant]
     Route: 042
     Dates: start: 20080901, end: 20080901

REACTIONS (5)
  - DRUG EXPOSURE DURING PREGNANCY [None]
  - OVERDOSE [None]
  - PREMATURE BABY [None]
  - SELF INJURIOUS BEHAVIOUR [None]
  - THREATENED LABOUR [None]
